FAERS Safety Report 5240330-7 (Version None)
Quarter: 2007Q1

REPORT INFORMATION
  Report Type: 
  Country: None (occurrence: None)
  Receive Date: 20070219
  Receipt Date: 20070206
  Transmission Date: 20070707
  Serious: Yes (Other)
  Sender: FDA-Public Use
  Company Number: PHBS2007IT02357

PATIENT
  Sex: Female

DRUGS (1)
  1. ESTALIS SEQUI [Suspect]
     Indication: HORMONE REPLACEMENT THERAPY
     Route: 062

REACTIONS (1)
  - OPTIC NEURITIS [None]
